FAERS Safety Report 9364511 (Version 1)
Quarter: 2013Q2

REPORT INFORMATION
  Report Type: Spontaneous
  Country: FR (occurrence: None)
  Receive Date: 20130619
  Receipt Date: 20130619
  Transmission Date: 20140414
  Serious: Yes (Hospitalization)
  Sender: FDA-Public Use
  Company Number: 1747418

PATIENT
  Age: 74 Year
  Sex: Male
  Weight: 75 kg

DRUGS (6)
  1. (CARBOPLATIN) [Suspect]
     Indication: PHARYNGEAL NEOPLASM
     Dates: start: 20130226
  2. (CARBOPLATIN) [Suspect]
     Indication: PHARYNGEAL NEOPLASM
     Dates: start: 20130226
  3. (CARBOPLATIN) [Suspect]
     Indication: PHARYNGEAL NEOPLASM
     Dates: start: 20130226
  4. (FLUOROURACIL) [Concomitant]
  5. (TAXOTERE) [Concomitant]
  6. (TAXOL) [Concomitant]

REACTIONS (3)
  - Hepatitis cholestatic [None]
  - Weight decreased [None]
  - Diarrhoea [None]
